FAERS Safety Report 5083171-6 (Version None)
Quarter: 2006Q3

REPORT INFORMATION
  Report Type: 
  Country: None (occurrence: None)
  Receive Date: 20060818
  Receipt Date: 20060809
  Transmission Date: 20061208
  Serious: Yes (Other)
  Sender: FDA-Public Use
  Company Number: PHBS2006NZ12017

PATIENT
  Age: 27 Year
  Sex: Female

DRUGS (2)
  1. CLOZAPINE [Suspect]
     Indication: SCHIZOPHRENIA
     Dates: start: 19940101
  2. CLONAZEPAM [Suspect]

REACTIONS (4)
  - SLEEP APNOEA SYNDROME [None]
  - SLEEP DISORDER [None]
  - SNORING [None]
  - WEIGHT INCREASED [None]
